FAERS Safety Report 7199176-5 (Version None)
Quarter: 2010Q4

REPORT INFORMATION
  Report Type: 
  Country: None (occurrence: None)
  Receive Date: 20101222
  Receipt Date: 20101222
  Transmission Date: 20110411
  Serious: Yes (Other)
  Sender: FDA-Public Use
  Company Number: None

PATIENT
  Age: 61 Year
  Sex: Male
  Weight: 107.0489 kg

DRUGS (2)
  1. ROBITUSSIN CF MAXIUM MAXIUM PFIZER [Suspect]
     Indication: COUGH
     Dosage: 2 TEASPOONS 4 HOURS PO
     Route: 048
     Dates: start: 20101221, end: 20101221
  2. ROBITUSSIN CF MAXIUM MAXIUM PFIZER [Suspect]
     Indication: NASAL CONGESTION
     Dosage: 2 TEASPOONS 4 HOURS PO
     Route: 048
     Dates: start: 20101221, end: 20101221

REACTIONS (1)
  - HICCUPS [None]
